FAERS Safety Report 25908164 (Version 2)
Quarter: 2025Q4

REPORT INFORMATION
  Report Type: Spontaneous
  Country: US (occurrence: US)
  Receive Date: 20251010
  Receipt Date: 20251020
  Transmission Date: 20260117
  Serious: No
  Sender: IDORSIA PHARMACEUTICALS
  Company Number: US-IDORSIA-012025-2025-US

PATIENT
  Sex: Male

DRUGS (2)
  1. QUVIVIQ [Suspect]
     Active Substance: DARIDOREXANT
     Indication: Insomnia
     Dosage: 50 MG
     Route: 048
  2. LORAZEPAM [Concomitant]
     Active Substance: LORAZEPAM

REACTIONS (2)
  - Drug ineffective [Unknown]
  - Product quality issue [Unknown]
